FAERS Safety Report 9098407 (Version 1)
Quarter: 2013Q1

REPORT INFORMATION
  Report Type: Spontaneous
  Country: FR (occurrence: FR)
  Receive Date: 20130213
  Receipt Date: 20130213
  Transmission Date: 20140127
  Serious: Yes (Hospitalization)
  Sender: FDA-Public Use
  Company Number: PHHY2013FR013109

PATIENT
  Age: 62 Year
  Sex: Male

DRUGS (7)
  1. TEGRETOL [Suspect]
     Indication: EPILEPSY
     Dosage: 400 MG, BID
     Route: 048
     Dates: start: 2006, end: 201212
  2. URBANYL [Concomitant]
     Dosage: 10 MG, TID
     Route: 048
  3. SERESTA [Concomitant]
     Dosage: 50 MG, QD
     Route: 048
     Dates: end: 201212
  4. FORLAX [Concomitant]
     Dosage: UNK UKN, QD
     Route: 048
  5. THERALENE [Concomitant]
     Dosage: 11 DROPS, QD
     Route: 048
     Dates: end: 201212
  6. SEVIKAR [Concomitant]
     Dosage: 1 DF, QD
     Route: 048
     Dates: start: 2011
  7. EFFERALGAN [Concomitant]
     Dosage: 1 G, TID
     Route: 048

REACTIONS (5)
  - Hyponatraemia [Recovered/Resolved]
  - Malaise [Recovered/Resolved]
  - Inappropriate antidiuretic hormone secretion [Recovered/Resolved]
  - Amimia [Unknown]
  - Asthenia [Unknown]
